FAERS Safety Report 6925781-4 (Version None)
Quarter: 2010Q3

REPORT INFORMATION
  Report Type: 
  Country: None (occurrence: None)
  Receive Date: 20100816
  Receipt Date: 20100809
  Transmission Date: 20110219
  Serious: Yes (Hospitalization, Disabling)
  Sender: FDA-Public Use
  Company Number: B0668970A

PATIENT
  Age: 78 Year
  Sex: Male
  Weight: 72 kg

DRUGS (2)
  1. REQUIP XL [Suspect]
     Indication: PARKINSON'S DISEASE
     Route: 048
     Dates: start: 20050101, end: 20100601
  2. MADOPAR [Concomitant]
     Indication: PARKINSON'S DISEASE
     Dosage: 375MG PER DAY
     Route: 048
     Dates: start: 20100601

REACTIONS (10)
  - AGITATION [None]
  - ANXIETY [None]
  - DEPRESSED MOOD [None]
  - FATIGUE [None]
  - HALLUCINATION [None]
  - HYPERHIDROSIS [None]
  - IMPULSE-CONTROL DISORDER [None]
  - PAIN [None]
  - PANIC ATTACK [None]
  - WITHDRAWAL SYNDROME [None]
